FAERS Safety Report 11912639 (Version 2)
Quarter: 2016Q1

REPORT INFORMATION
  Report Type: Spontaneous
  Country: US (occurrence: US)
  Receive Date: 20160113
  Receipt Date: 20160126
  Transmission Date: 20160526
  Serious: Yes (Hospitalization)
  Sender: FDA-Public Use
  Company Number: US-ROCHE-1693549

PATIENT
  Age: 70 Year
  Sex: Male
  Weight: 104.42 kg

DRUGS (1)
  1. ESBRIET [Suspect]
     Active Substance: PIRFENIDONE
     Indication: IDIOPATHIC PULMONARY FIBROSIS
     Dosage: 3 CAPSULES 3 TIMES A DAY, TOTAL- 2403 MG DAILY
     Route: 048
     Dates: start: 20150302

REACTIONS (1)
  - Oxygen saturation decreased [Unknown]

NARRATIVE: CASE EVENT DATE: 20151214
